FAERS Safety Report 4338734-X (Version None)
Quarter: 2004Q2

REPORT INFORMATION
  Report Type: 
  Country: None (occurrence: None)
  Receive Date: 20040409
  Receipt Date: 20040330
  Transmission Date: 20050107
  Serious: Yes (Other)
  Sender: FDA-Public Use
  Company Number: HQWYE292631MAR04

PATIENT
  Age: 56 Year
  Sex: Male

DRUGS (1)
  1. EFFEXOR XR [Suspect]
     Indication: DEPRESSION
     Dosage: SEE IMAGE
     Route: 048
     Dates: end: 20031001

REACTIONS (3)
  - DEPRESSION [None]
  - SLEEP APNOEA SYNDROME [None]
  - TREMOR [None]
